FAERS Safety Report 7690771-3 (Version None)
Quarter: 2011Q3

REPORT INFORMATION
  Report Type: 
  Country: None (occurrence: None)
  Receive Date: 20110818
  Receipt Date: 20110801
  Transmission Date: 20111222
  Serious: Yes (Hospitalization)
  Sender: FDA-Public Use
  Company Number: JP-UCBSA-024665

PATIENT
  Sex: Female

DRUGS (22)
  1. ISONIAZID [Concomitant]
     Dates: start: 20090509
  2. LANSOPRAZOLE [Concomitant]
     Dates: start: 20100506
  3. REBAMIPIDE [Concomitant]
     Dates: start: 20110114
  4. LOXOPROFEN SODIUM [Concomitant]
     Dates: start: 20100726, end: 20101223
  5. CARBAZOCHROME SODIUM SULFONATE [Concomitant]
     Dates: start: 20100119, end: 20100202
  6. NORETHISTERONE_ETHINYLESTRADIOL [Concomitant]
     Dosage: 1 TABLET DAILY
     Dates: start: 20110108
  7. BUCILLAMINE [Concomitant]
     Dates: start: 20071128
  8. KETOPROFEN [Concomitant]
     Dosage: ADEQUATE DOSE
     Dates: start: 20091105
  9. GOSHA-JINKI-GAN [Concomitant]
     Dates: start: 20100119, end: 20100201
  10. NITRAZEPAM [Concomitant]
     Dates: start: 20101229
  11. CERTOLIZUMAB PEGOL [Suspect]
     Indication: RHEUMATOID ARTHRITIS
     Route: 058
     Dates: start: 20090924
  12. PREDNISOLONE [Concomitant]
     Dates: start: 20090202, end: 20110223
  13. PREDNISOLONE [Concomitant]
     Dates: start: 20110224
  14. FERROUS CITRATE [Concomitant]
     Dates: start: 20080415, end: 20110106
  15. TRANEXAMIC ACID [Concomitant]
     Dates: start: 20100119, end: 20100202
  16. NORETHISTERONE_ETHINYLESTRADIOL [Concomitant]
     Dosage: ONE TABLET DAILY
     Dates: start: 20100421, end: 20100511
  17. LOXOPROFEN SODIUM HYDRATE [Concomitant]
     Dates: start: 20110224
  18. BROTIZOLAM [Concomitant]
     Dates: start: 20110210
  19. LOXOPROFEN SODIUM [Concomitant]
     Dates: start: 20101224
  20. CEVIMELINE HYDROCHLORIDE HYDRATE [Concomitant]
     Dates: start: 20070718, end: 20110106
  21. PROCESSED ACONITE ROOT [Concomitant]
     Dates: start: 20100119, end: 20110201
  22. OGI-KENTYU-TO [Concomitant]
     Dates: start: 20100413, end: 20100420

REACTIONS (3)
  - MIGRAINE [None]
  - THORACIC OUTLET SYNDROME [None]
  - ENTERITIS INFECTIOUS [None]
